FAERS Safety Report 15812597 (Version 1)
Quarter: 2019Q1

REPORT INFORMATION
  Report Type: Spontaneous
  Country: US (occurrence: US)
  Receive Date: 20190108
  Receipt Date: 20190108
  Transmission Date: 20190417
  Serious: No
  Sender: FDA-Public Use
  Company Number: None

PATIENT

DRUGS (2)
  1. VIIBRYD [Suspect]
     Active Substance: VILAZODONE HYDROCHLORIDE
  2. VIIBRYD [Suspect]
     Active Substance: VILAZODONE HYDROCHLORIDE

REACTIONS (1)
  - Product dispensing error [None]
